FAERS Safety Report 21165933 (Version 1)
Quarter: 2022Q3

REPORT INFORMATION
  Report Type: Spontaneous
  Country: US (occurrence: US)
  Receive Date: 20220803
  Receipt Date: 20220803
  Transmission Date: 20221026
  Serious: No
  Sender: FDA-Public Use
  Company Number: US-drreddys-SPO/USA/22/0152676

PATIENT
  Age: 41 Year

DRUGS (1)
  1. ZENATANE [Suspect]
     Active Substance: ISOTRETINOIN
     Indication: Product used for unknown indication
     Dosage: RMA ISSUE DATE: 19 MAY 2022 06:22:58 PM AND 20 JUNE 2022 02:32:45 PM

REACTIONS (3)
  - Arthralgia [Unknown]
  - Headache [Unknown]
  - Vision blurred [Unknown]
